FAERS Safety Report 21810583 (Version 1)
Quarter: 2023Q1

REPORT INFORMATION
  Report Type: Spontaneous
  Country: US (occurrence: US)
  Receive Date: 20230103
  Receipt Date: 20230103
  Transmission Date: 20230418
  Serious: No
  Sender: FDA-Public Use
  Company Number: US-BAYER-2022A174583

PATIENT
  Age: 84 Year
  Sex: Male

DRUGS (1)
  1. MIRALAX [Suspect]
     Active Substance: POLYETHYLENE GLYCOL 3350
     Dosage: 1 CAP ONCE OR TWICE A DAY FOR THE LAST 8 DAYS
     Route: 048
     Dates: start: 20221215, end: 20221223

REACTIONS (4)
  - Constipation [Not Recovered/Not Resolved]
  - Expired product administered [Not Recovered/Not Resolved]
  - Extra dose administered [Not Recovered/Not Resolved]
  - Incorrect product administration duration [Not Recovered/Not Resolved]

NARRATIVE: CASE EVENT DATE: 20221215
